FAERS Safety Report 4385295-5 (Version None)
Quarter: 2004Q2

REPORT INFORMATION
  Report Type: 
  Country: None (occurrence: None)
  Receive Date: 20040607
  Receipt Date: 20040213
  Transmission Date: 20050107
  Serious: Yes (Other)
  Sender: FDA-Public Use
  Company Number: 358874

PATIENT

DRUGS (4)
  1. ISOTRETINOIN [Suspect]
     Indication: ACNE
     Dosage: 10 MG DAILY ORAL
     Route: 048
     Dates: start: 20031001, end: 20031004
  2. ISOTRETINOIN [Suspect]
     Indication: ACNE
     Dosage: 1 PER DAY TOPICAL
     Route: 061
     Dates: start: 20031001, end: 20031004
  3. TENORMIN [Suspect]
     Indication: PALPITATIONS
     Dosage: 50 MG DAILY ORAL
     Route: 048
     Dates: start: 20020616, end: 20031224
  4. FLUOXETINE HCL [Suspect]
     Indication: DEPRESSION
     Dosage: 20 MG DAILY ORAL
     Route: 048
     Dates: end: 20031224

REACTIONS (3)
  - DRUG EXPOSURE DURING PREGNANCY [None]
  - NO ADVERSE EFFECT [None]
  - PREGNANCY [None]
